FAERS Safety Report 6609831-0 (Version None)
Quarter: 2010Q1

REPORT INFORMATION
  Report Type: 
  Country: None (occurrence: None)
  Receive Date: 20100302
  Receipt Date: 20100217
  Transmission Date: 20100710
  Serious: Yes (Hospitalization)
  Sender: FDA-Public Use
  Company Number: PHHY2008IE29362

PATIENT
  Sex: Female

DRUGS (1)
  1. CLOZARIL [Suspect]
     Indication: SCHIZOPHRENIA
     Dosage: UNK
     Dates: start: 20080131, end: 20100217

REACTIONS (4)
  - BREAST CANCER METASTATIC [None]
  - METASTASES TO LIVER [None]
  - METASTASES TO SPINE [None]
  - VOMITING [None]
